FAERS Safety Report 5018281-2 (Version None)
Quarter: 2006Q2

REPORT INFORMATION
  Report Type: 
  Country: None (occurrence: None)
  Receive Date: 20060530
  Receipt Date: 20060516
  Transmission Date: 20061013
  Serious: Yes (Hospitalization)
  Sender: FDA-Public Use
  Company Number: 2006060408

PATIENT
  Sex: Male

DRUGS (3)
  1. SULPERAZONE (SULBACTAM, CEFOPERAZONE) [Suspect]
     Indication: PROPHYLAXIS
     Dosage: 2 GRAM (1 GRAM, 2 IN 1 D), INTRAVENOUS
     Route: 042
  2. BUPIVACAINE HCL [Concomitant]
  3. TOLTERODINE TARTRATE [Concomitant]

REACTIONS (1)
  - POSTOPERATIVE RENAL FAILURE [None]
